FAERS Safety Report 9992823 (Version 1)
Quarter: 2014Q1

REPORT INFORMATION
  Report Type: Report from Study
  Country: US (occurrence: US)
  Receive Date: 20140310
  Receipt Date: 20140310
  Transmission Date: 20141002
  Serious: No
  Sender: FDA-Public Use
  Company Number: US-ABBVIE-13P-163-1108895-00

PATIENT
  Age: 39 Year
  Sex: Female

DRUGS (2)
  1. LUPRON DEPOT [Suspect]
     Indication: ENDOMETRIOSIS
     Dates: start: 201301, end: 201304
  2. NORETHINDRONE [Suspect]
     Dates: start: 201302, end: 201304

REACTIONS (6)
  - Poor quality sleep [Unknown]
  - Burning sensation [Unknown]
  - Hot flush [Not Recovered/Not Resolved]
  - Weight increased [Recovered/Resolved]
  - Metrorrhagia [Recovered/Resolved]
  - Breast pain [Recovered/Resolved]
